FAERS Safety Report 19436688 (Version 4)
Quarter: 2021Q3

REPORT INFORMATION
  Report Type: Spontaneous
  Country: BR (occurrence: BR)
  Receive Date: 20210618
  Receipt Date: 20210928
  Transmission Date: 20211014
  Serious: Yes (Death, Life-Threatening, Other)
  Sender: FDA-Public Use
  Company Number: BR-ROCHE-2829189

PATIENT
  Age: 53 Year
  Sex: Male
  Weight: 100 kg

DRUGS (1)
  1. ACTEMRA [Suspect]
     Active Substance: TOCILIZUMAB
     Indication: COVID-19
     Dosage: SINGLE DOSE
     Route: 042
     Dates: start: 20210331, end: 20210331

REACTIONS (9)
  - Cardio-respiratory arrest [Fatal]
  - Infection [Recovering/Resolving]
  - Staphylococcus test positive [Unknown]
  - Multi-organ disorder [Unknown]
  - Shock [Unknown]
  - Pyrexia [Unknown]
  - Hypotension [Fatal]
  - Thrombocytopenia [Not Recovered/Not Resolved]
  - Off label use [Unknown]

NARRATIVE: CASE EVENT DATE: 20210331
